FAERS Safety Report 26138582 (Version 1)
Quarter: 2025Q4

REPORT INFORMATION
  Report Type: Spontaneous
  Country: EU (occurrence: EU)
  Receive Date: 20251210
  Receipt Date: 20251210
  Transmission Date: 20260118
  Serious: Yes (Life-Threatening, Other)
  Sender: ASTELLAS
  Company Number: EU-GILEAD-2025-0739768

PATIENT
  Age: 14 Year
  Sex: Male

DRUGS (3)
  1. AMPHOTERICIN B [Suspect]
     Active Substance: AMPHOTERICIN B
     Indication: Product used for unknown indication
     Dosage: 5 MG/KG
     Route: 065
  2. VORICONAZOLE [Concomitant]
     Active Substance: VORICONAZOLE
     Indication: Product used for unknown indication
     Route: 065
  3. CASPOFUNGIN [Concomitant]
     Active Substance: CASPOFUNGIN
     Indication: Product used for unknown indication
     Route: 065

REACTIONS (7)
  - Epstein-Barr virus infection reactivation [Unknown]
  - Acute kidney injury [Unknown]
  - Immune reconstitution inflammatory syndrome [Unknown]
  - Human polyomavirus infection [Unknown]
  - Dyspnoea [Recovered/Resolved]
  - Drug hypersensitivity [Unknown]
  - Chest pain [Unknown]
